FAERS Safety Report 11743572 (Version 3)
Quarter: 2016Q1

REPORT INFORMATION
  Report Type: Spontaneous
  Country: US (occurrence: US)
  Receive Date: 20151116
  Receipt Date: 20160112
  Transmission Date: 20160525
  Serious: Yes (Hospitalization, Other)
  Sender: FDA-Public Use
  Company Number: US-GLAXOSMITHKLINE-US2015GSK160548

PATIENT
  Age: 41 Year
  Sex: Male
  Weight: 66.7 kg

DRUGS (9)
  1. METOPROLOL. [Concomitant]
     Active Substance: METOPROLOL
  2. KLONOPIN [Concomitant]
     Active Substance: CLONAZEPAM
  3. ZANTAC [Suspect]
     Active Substance: RANITIDINE HYDROCHLORIDE
     Indication: GASTROOESOPHAGEAL REFLUX DISEASE
     Dosage: 150 MG, BID
     Route: 048
     Dates: start: 20151027
  4. NICOTINE. [Suspect]
     Active Substance: NICOTINE
     Indication: TOBACCO USER
     Dosage: UNK
     Dates: start: 20151029, end: 20151102
  5. TIKOSYN [Suspect]
     Active Substance: DOFETILIDE
     Dosage: 500 MG, BID
     Route: 048
     Dates: start: 20151027, end: 20151030
  6. TIKOSYN [Suspect]
     Active Substance: DOFETILIDE
     Indication: SINUS RHYTHM
     Dosage: 500 MG, QD
     Route: 048
     Dates: start: 20151028
  7. ASPIRIN. [Concomitant]
     Active Substance: ASPIRIN
     Dosage: 81 MG, UNK
  8. ELIQUIS [Suspect]
     Active Substance: APIXABAN
     Indication: ANTICOAGULANT THERAPY
     Dosage: UNK
     Dates: start: 20151029, end: 20151029
  9. LOSARTAN. [Concomitant]
     Active Substance: LOSARTAN

REACTIONS (11)
  - Cardiomyopathy [Unknown]
  - Hallucination [Recovered/Resolved]
  - Sinus tachycardia [Unknown]
  - Extrasystoles [Unknown]
  - Paranoia [Recovered/Resolved]
  - Psychotic disorder [Recovered/Resolved]
  - Delirium [Unknown]
  - Condition aggravated [Unknown]
  - Atrial fibrillation [Unknown]
  - Ventricular tachycardia [Unknown]
  - Troponin increased [Unknown]

NARRATIVE: CASE EVENT DATE: 20151029
